FAERS Safety Report 6157887-4 (Version None)
Quarter: 2009Q2

REPORT INFORMATION
  Report Type: 
  Country: None (occurrence: None)
  Receive Date: 20090417
  Receipt Date: 20070522
  Transmission Date: 20091009
  Serious: Yes (Hospitalization, Other)
  Sender: FDA-Public Use
  Company Number: US-ASTRAZENECA-2006UW10920

PATIENT
  Age: 348 Month
  Sex: Female
  Weight: 161.5 kg

DRUGS (18)
  1. SEROQUEL [Suspect]
     Indication: SLEEP DISORDER
     Route: 048
     Dates: start: 20041203, end: 20060501
  2. SEROQUEL [Suspect]
     Dosage: 20 MG - 50 MG
     Route: 048
     Dates: start: 20020318
  3. RISPERDAL [Concomitant]
     Dates: start: 20010101
  4. DEXATRIM [Concomitant]
  5. TOPAMAX [Concomitant]
  6. XANTRAX [Concomitant]
  7. LEXAPRO [Concomitant]
  8. XANAX [Concomitant]
  9. PRINIVIL [Concomitant]
  10. LIPITOR [Concomitant]
  11. LENTIS INSULIN [Concomitant]
  12. AVANDIA [Concomitant]
  13. GLUCOVANCE [Concomitant]
  14. BYETTA [Concomitant]
  15. LORTAB [Concomitant]
  16. TORADOL [Concomitant]
  17. TRAZODONE HCL [Concomitant]
  18. GLUCOPHAGE [Concomitant]

REACTIONS (59)
  - ABDOMINAL PAIN [None]
  - ACUTE SINUSITIS [None]
  - AGORAPHOBIA [None]
  - AMENORRHOEA [None]
  - ANAL FISSURE [None]
  - ARTHRALGIA [None]
  - BACK PAIN [None]
  - BRONCHOSPASM [None]
  - CALCULUS URETERIC [None]
  - CELLULITIS [None]
  - CEREBROVASCULAR ACCIDENT [None]
  - CHEST PAIN [None]
  - DERMATITIS [None]
  - DIABETIC NEUROPATHY [None]
  - DIARRHOEA [None]
  - DYSPNOEA [None]
  - EUSTACHIAN TUBE DYSFUNCTION [None]
  - FACIAL NERVE DISORDER [None]
  - FACIAL PALSY [None]
  - FLANK PAIN [None]
  - GASTRITIS [None]
  - GASTROENTERITIS [None]
  - HAEMORRHOIDS [None]
  - HEADACHE [None]
  - HIATUS HERNIA [None]
  - HYPERGLYCAEMIA [None]
  - HYPERKERATOSIS [None]
  - HYPOMAGNESAEMIA [None]
  - INFERTILITY FEMALE [None]
  - INFLUENZA [None]
  - INGROWING NAIL [None]
  - JOINT SPRAIN [None]
  - KETOACIDOSIS [None]
  - MAJOR DEPRESSION [None]
  - MENORRHAGIA [None]
  - MUSCULOSKELETAL DISCOMFORT [None]
  - MUSCULOSKELETAL DISORDER [None]
  - NORMOCHROMIC NORMOCYTIC ANAEMIA [None]
  - OLIGOMENORRHOEA [None]
  - ORAL HERPES [None]
  - OTITIS MEDIA [None]
  - PARONYCHIA [None]
  - PERIPHERAL VASCULAR DISORDER [None]
  - PHARYNGITIS [None]
  - PTERYGIUM [None]
  - PYELONEPHRITIS ACUTE [None]
  - PYREXIA [None]
  - RASH [None]
  - RECTAL HAEMORRHAGE [None]
  - RENAL COLIC [None]
  - RHINORRHOEA [None]
  - STRESS URINARY INCONTINENCE [None]
  - TEMPOROMANDIBULAR JOINT SYNDROME [None]
  - TINEA PEDIS [None]
  - TRANSIENT ISCHAEMIC ATTACK [None]
  - URINARY TRACT INFECTION [None]
  - VISION BLURRED [None]
  - VOMITING [None]
  - VULVOVAGINAL CANDIDIASIS [None]
